FAERS Safety Report 17653769 (Version 2)
Quarter: 2020Q3

REPORT INFORMATION
  Report Type: Report from Study
  Country: None (occurrence: US)
  Receive Date: 20200410
  Receipt Date: 20200716
  Transmission Date: 20201102
  Serious: No
  Sender: FDA-Public Use
  Company Number: US-ABBVIE-20K-163-3353627-00

PATIENT
  Sex: Male
  Weight: 86.26 kg

DRUGS (2)
  1. HUMIRA [Suspect]
     Active Substance: ADALIMUMAB
     Route: 058
  2. HUMIRA [Suspect]
     Active Substance: ADALIMUMAB
     Indication: CROHN^S DISEASE
     Route: 058

REACTIONS (1)
  - Injection site pain [Recovered/Resolved]
